FAERS Safety Report 8111933-7 (Version None)
Quarter: 2012Q1

REPORT INFORMATION
  Report Type: 
  Country: None (occurrence: None)
  Receive Date: 20120203
  Receipt Date: 20110610
  Transmission Date: 20120608
  Serious: No
  Sender: FDA-Public Use
  Company Number: US-GLAXOSMITHKLINE-A0931156A

PATIENT
  Age: 52 Year
  Sex: Female

DRUGS (6)
  1. ASPIRIN [Concomitant]
  2. ZANTAC [Concomitant]
  3. ARIXTRA [Suspect]
     Indication: ANTIPHOSPHOLIPID SYNDROME
     Dosage: 7.5MG PER DAY
     Route: 058
     Dates: start: 20040301
  4. LYSINE [Concomitant]
  5. VERAPAMIL [Concomitant]
  6. LEVOFLOXACIN [Concomitant]

REACTIONS (8)
  - VISUAL ACUITY REDUCED [None]
  - OEDEMA PERIPHERAL [None]
  - HYPOAESTHESIA [None]
  - MUSCLE TIGHTNESS [None]
  - DRUG INTERACTION [None]
  - GENERALISED OEDEMA [None]
  - ILL-DEFINED DISORDER [None]
  - THYROID DISORDER [None]
